FAERS Safety Report 4990698-1 (Version None)
Quarter: 2006Q2

REPORT INFORMATION
  Report Type: 
  Country: None (occurrence: None)
  Receive Date: 20060427
  Receipt Date: 20060418
  Transmission Date: 20061013
  Serious: Yes (Death, Hospitalization)
  Sender: FDA-Public Use
  Company Number: 163-21880-06010637

PATIENT
  Age: 50 Year
  Sex: Male

DRUGS (5)
  1. REVLIMID [Suspect]
     Indication: CHRONIC LYMPHOCYTIC LEUKAEMIA
     Dosage: 10 MG, BID, ORAL; SEE IMAGE
     Route: 048
     Dates: start: 20060109, end: 20060123
  2. REVLIMID [Suspect]
     Indication: CHRONIC LYMPHOCYTIC LEUKAEMIA
     Dosage: 10 MG, BID, ORAL; SEE IMAGE
     Route: 048
     Dates: start: 20060209, end: 20060201
  3. VICODIN [Concomitant]
  4. DECADRON [Concomitant]
  5. ACYCLOVIR [Concomitant]

REACTIONS (8)
  - AGRANULOCYTOSIS [None]
  - HAEMOGLOBIN DECREASED [None]
  - LEUKOPENIA [None]
  - LYMPHADENOPATHY [None]
  - MORAXELLA INFECTION [None]
  - NEUTROPENIA [None]
  - SEPSIS [None]
  - THROMBOCYTOPENIA [None]
